FAERS Safety Report 22390307 (Version 4)
Quarter: 2023Q4

REPORT INFORMATION
  Report Type: Spontaneous
  Country: US (occurrence: US)
  Receive Date: 20230531
  Receipt Date: 20231018
  Transmission Date: 20240110
  Serious: Yes (Other)
  Sender: FDA-Public Use
  Company Number: US-PFIZER INC-PV202300065936

PATIENT
  Age: 88 Year
  Sex: Female

DRUGS (1)
  1. IBRANCE [Suspect]
     Active Substance: PALBOCICLIB
     Indication: Breast cancer female
     Dosage: TAKE 1 TAB DAILY FOR 21 DAYS

REACTIONS (7)
  - Bone disorder [Unknown]
  - Fatigue [Unknown]
  - Visual impairment [Unknown]
  - Lymphoedema [Unknown]
  - White blood cell count decreased [Unknown]
  - Hypersomnia [Unknown]
  - Hypoacusis [Unknown]
